FAERS Safety Report 6642699-5 (Version None)
Quarter: 2010Q1

REPORT INFORMATION
  Report Type: 
  Country: None (occurrence: None)
  Receive Date: 20100316
  Receipt Date: 20100308
  Transmission Date: 20100710
  Serious: Yes (Hospitalization)
  Sender: FDA-Public Use
  Company Number: 2010SP014574

PATIENT
  Age: 51 Year
  Sex: Male

DRUGS (7)
  1. ORGARAN [Suspect]
     Indication: THROMBOSIS PROPHYLAXIS
     Dosage: 3000 IU;ONCE;IV
     Route: 042
     Dates: start: 20091216, end: 20091216
  2. DIPRIVAN (CON.) [Concomitant]
  3. ETOMIDATE (CON.) [Concomitant]
  4. SUFENTA (CON.) [Concomitant]
  5. KEFANDOL (CON.) [Concomitant]
  6. DESFLURANE (CON.) [Concomitant]
  7. NIMBEX (CON.) [Concomitant]

REACTIONS (4)
  - ANAPHYLACTIC SHOCK [None]
  - ERYTHEMA [None]
  - OXYGEN SATURATION DECREASED [None]
  - TACHYCARDIA [None]
